FAERS Safety Report 6856004-2 (Version None)
Quarter: 2010Q3

REPORT INFORMATION
  Report Type: 
  Country: None (occurrence: None)
  Receive Date: 20100716
  Receipt Date: 20100716
  Transmission Date: 20110219
  Serious: Yes (Hospitalization, Disabling)
  Sender: FDA-Public Use
  Company Number: None

PATIENT
  Sex: Female
  Weight: 65.7716 kg

DRUGS (3)
  1. ZOMETA [Suspect]
     Indication: FRACTURE
     Dosage: 4MG IV Q 3 MONTHS I.V. FOR 7 1/2 YRS
     Route: 042
     Dates: start: 20030701
  2. ZOMETA [Suspect]
     Indication: MULTIPLE MYELOMA
     Dosage: 4MG IV Q 3 MONTHS I.V. FOR 7 1/2 YRS
     Route: 042
     Dates: start: 20030701
  3. ZOMETA [Suspect]
     Indication: PROPHYLAXIS
     Dosage: 4MG IV Q 3 MONTHS I.V. FOR 7 1/2 YRS
     Route: 042
     Dates: start: 20030701

REACTIONS (7)
  - FALL [None]
  - IMMOBILE [None]
  - LOWER LIMB FRACTURE [None]
  - OEDEMA PERIPHERAL [None]
  - PAIN IN EXTREMITY [None]
  - UNEVALUABLE EVENT [None]
  - X-RAY LIMB ABNORMAL [None]
